FAERS Safety Report 5287693-4 (Version None)
Quarter: 2007Q1

REPORT INFORMATION
  Report Type: 
  Country: None (occurrence: None)
  Receive Date: 20070116
  Receipt Date: 20061206
  Transmission Date: 20070707
  Serious: No
  Sender: FDA-Public Use
  Company Number: 2005SP001500

PATIENT
  Age: 53 Year
  Sex: Male
  Weight: 83.0083 kg

DRUGS (1)
  1. LUNESTA [Suspect]
     Dosage: 2 MG; HS; ORAL
     Route: 048
     Dates: start: 20050619, end: 20050101

REACTIONS (1)
  - DYSGEUSIA [None]
